FAERS Safety Report 15242375 (Version 1)
Quarter: 2018Q3

REPORT INFORMATION
  Report Type: Report from Study
  Country: FR (occurrence: FR)
  Receive Date: 20180806
  Receipt Date: 20180806
  Transmission Date: 20181010
  Serious: Yes (Other)
  Sender: FDA-Public Use
  Company Number: FR-TEVA-2018-FR-935139

PATIENT
  Age: 54 Year
  Sex: Male

DRUGS (14)
  1. TACROLIMUS. [Suspect]
     Active Substance: TACROLIMUS
     Route: 065
     Dates: start: 20170114
  2. TACROLIMUS. [Suspect]
     Active Substance: TACROLIMUS
     Route: 065
     Dates: start: 20170111
  3. CORTANCYL [Concomitant]
     Active Substance: PREDNISONE
     Dosage: 17.5 MILLIGRAM DAILY;
     Route: 065
     Dates: start: 20170114, end: 20170125
  4. TACROLIMUS. [Suspect]
     Active Substance: TACROLIMUS
     Dosage: 5 UNKNOWN DAILY;
     Route: 065
     Dates: start: 20170810
  5. CELLCEPT [Concomitant]
     Active Substance: MYCOPHENOLATE MOFETIL\MYCOPHENOLATE MOFETIL HYDROCHLORIDE
     Dosage: 500 (UNIT NOT PROVIDED), UNKNOWN FREQ.
     Route: 065
  6. TACROLIMUS. [Suspect]
     Active Substance: TACROLIMUS
     Dosage: 8.5 MILLIGRAM DAILY;
     Route: 065
     Dates: start: 20170223
  7. CORTANCYL [Concomitant]
     Active Substance: PREDNISONE
     Indication: IMMUNOSUPPRESSION
     Dosage: 20 UNKNOWN DAILY;
     Route: 065
     Dates: start: 20170104, end: 20170113
  8. CORTANCYL [Concomitant]
     Active Substance: PREDNISONE
     Dosage: 12.5 UNKNOWN DAILY;
     Route: 065
     Dates: start: 20170126, end: 20170129
  9. CORTANCYL [Concomitant]
     Active Substance: PREDNISONE
     Dosage: 10 UNKNOWN DAILY;
     Route: 065
     Dates: start: 20170130, end: 20170308
  10. TACROLIMUS. [Suspect]
     Active Substance: TACROLIMUS
     Route: 065
     Dates: start: 20170309
  11. TACROLIMUS. [Suspect]
     Active Substance: TACROLIMUS
     Route: 065
     Dates: start: 20170202
  12. CELLCEPT [Concomitant]
     Active Substance: MYCOPHENOLATE MOFETIL\MYCOPHENOLATE MOFETIL HYDROCHLORIDE
     Indication: IMMUNOSUPPRESSION
     Dosage: 2000 UNKNOWN DAILY;
     Route: 065
     Dates: start: 20161208, end: 20170125
  13. TACROLIMUS. [Suspect]
     Active Substance: TACROLIMUS
     Route: 065
     Dates: start: 20170126
  14. TACROLIMUS. [Suspect]
     Active Substance: TACROLIMUS
     Route: 065
     Dates: start: 20170406

REACTIONS (3)
  - Cytomegalovirus infection [Recovered/Resolved]
  - Cytomegalovirus infection [Recovering/Resolving]
  - Cytomegalovirus infection [Recovered/Resolved]

NARRATIVE: CASE EVENT DATE: 20170201
